FAERS Safety Report 18728913 (Version 1)
Quarter: 2021Q1

REPORT INFORMATION
  Report Type: Spontaneous
  Country: US (occurrence: US)
  Receive Date: 20210112
  Receipt Date: 20210112
  Transmission Date: 20210419
  Serious: No
  Sender: FDA-Public Use
  Company Number: US-AMGEN-USASP2021003114

PATIENT

DRUGS (1)
  1. MVASI [Suspect]
     Active Substance: BEVACIZUMAB-AWWB
     Indication: PRODUCT USED FOR UNKNOWN INDICATION
     Dosage: MVASI 700 MG DOSE PREPARED USING MVASI 100 MG VIALS X 3 AND MVASI 400 MG VIALS X 1.
     Route: 065

REACTIONS (1)
  - Adverse event [Unknown]
